FAERS Safety Report 14664333 (Version 1)
Quarter: 2018Q1

REPORT INFORMATION
  Report Type: Spontaneous
  Country: US (occurrence: US)
  Receive Date: 20180321
  Receipt Date: 20180321
  Transmission Date: 20180509
  Serious: Yes (Other)
  Sender: FDA-Public Use
  Company Number: US-BAYER-2018-050090

PATIENT
  Age: 21 Year
  Sex: Female

DRUGS (1)
  1. ALKA-SELTZER ORIGINAL [Suspect]
     Active Substance: ANHYDROUS CITRIC ACID\ASPIRIN\SODIUM BICARBONATE
     Dosage: UNK
     Route: 048

REACTIONS (3)
  - Maternal exposure during pregnancy [Unknown]
  - Drug dependence [Unknown]
  - Wrong technique in product usage process [Unknown]
